FAERS Safety Report 24370452 (Version 1)
Quarter: 2024Q3

REPORT INFORMATION
  Report Type: Report from Study
  Country: US (occurrence: US)
  Receive Date: 20240927
  Receipt Date: 20240927
  Transmission Date: 20241017
  Serious: Yes (Other)
  Sender: ABBVIE
  Company Number: US-ABBVIE-5932616

PATIENT
  Sex: Male

DRUGS (2)
  1. IMBRUVICA [Suspect]
     Active Substance: IBRUTINIB
     Indication: Chronic lymphocytic leukaemia
     Route: 048
     Dates: start: 20200801
  2. COVID-19 VACCINE NOS [Suspect]
     Active Substance: COVID-19 VACCINE
     Indication: COVID-19 immunisation
     Dosage: ONE IN ONCE FREQUENCY
     Route: 030

REACTIONS (11)
  - Seizure [Unknown]
  - Ingrowing nail [Unknown]
  - Arthropod bite [Recovered/Resolved]
  - Basal cell carcinoma [Unknown]
  - Immunisation reaction [Unknown]
  - Rash [Unknown]
  - Drug hypersensitivity [Unknown]
  - Neuropathy peripheral [Unknown]
  - Peripheral swelling [Not Recovered/Not Resolved]
  - Vein rupture [Unknown]
  - Swelling [Recovered/Resolved]

NARRATIVE: CASE EVENT DATE: 20240101
